FAERS Safety Report 24157875 (Version 2)
Quarter: 2024Q3

REPORT INFORMATION
  Report Type: Spontaneous
  Country: US (occurrence: US)
  Receive Date: 20240731
  Receipt Date: 20240731
  Transmission Date: 20241017
  Serious: Yes (Other)
  Sender: ROCHE
  Company Number: US-ROCHE-10000035685

PATIENT
  Age: 70 Year
  Sex: Female

DRUGS (8)
  1. OCREVUS [Suspect]
     Active Substance: OCRELIZUMAB
     Indication: Relapsing-remitting multiple sclerosis
     Dosage: LAST DOSE ON 27//APR/2022
     Route: 065
     Dates: start: 201710
  2. VITAMIN C [Concomitant]
     Active Substance: ASCORBIC ACID
  3. vitamins b [Concomitant]
  4. BIOTIN [Concomitant]
     Active Substance: BIOTIN
  5. VITAMIN D [Concomitant]
     Active Substance: VITAMIN D NOS
  6. KLONOPIN [Concomitant]
     Active Substance: CLONAZEPAM
  7. LYRICA [Concomitant]
     Active Substance: PREGABALIN
  8. SEROQUEL [Concomitant]
     Active Substance: QUETIAPINE FUMARATE

REACTIONS (4)
  - Basal cell carcinoma [Unknown]
  - Lung adenocarcinoma [Unknown]
  - Intraductal proliferative breast lesion [Unknown]
  - Blood immunoglobulin G decreased [Unknown]

NARRATIVE: CASE EVENT DATE: 20230201
